FAERS Safety Report 14098937 (Version 1)
Quarter: 2017Q4

REPORT INFORMATION
  Report Type: Spontaneous
  Country: GB (occurrence: GB)
  Receive Date: 20171017
  Receipt Date: 20171017
  Transmission Date: 20180321
  Serious: Yes (Death)
  Sender: FDA-Public Use
  Company Number: GB-PFIZER INC-2017444543

PATIENT
  Age: 40 Year
  Sex: Male

DRUGS (3)
  1. PREGABALIN. [Suspect]
     Active Substance: PREGABALIN
     Dosage: UNK
  2. COCAINE [Suspect]
     Active Substance: COCAINE
  3. HEROIN [Suspect]
     Active Substance: DIAMORPHINE

REACTIONS (1)
  - Drug abuse [Fatal]
